FAERS Safety Report 6983653-3 (Version None)
Quarter: 2010Q3

REPORT INFORMATION
  Report Type: 
  Country: None (occurrence: None)
  Receive Date: 20100914
  Receipt Date: 20081201
  Transmission Date: 20110219
  Serious: No
  Sender: FDA-Public Use
  Company Number: US-WYE-H07014108

PATIENT
  Age: 57 Year
  Sex: Male
  Weight: 111.23 kg

DRUGS (4)
  1. ADVIL LIQUI-GELS [Suspect]
     Indication: HEADACHE
     Route: 048
     Dates: start: 20081122, end: 20081124
  2. ADVIL LIQUI-GELS [Suspect]
     Indication: PYREXIA
  3. CARTEOLOL HYDROCHLORIDE [Concomitant]
  4. MELATONIN [Concomitant]

REACTIONS (6)
  - CHROMATURIA [None]
  - DYSURIA [None]
  - ERYTHEMA [None]
  - OVERDOSE [None]
  - POLLAKIURIA [None]
  - URINE ODOUR ABNORMAL [None]
